FAERS Safety Report 20785235 (Version 1)
Quarter: 2022Q2

REPORT INFORMATION
  Report Type: Spontaneous
  Country: US (occurrence: None)
  Receive Date: 20220504
  Receipt Date: 20220504
  Transmission Date: 20220721
  Serious: No
  Sender: FDA-Public Use
  Company Number: None

PATIENT
  Age: 53 Year
  Sex: Female
  Weight: 163.1 kg

DRUGS (4)
  1. EVEROLIMUS [Suspect]
     Active Substance: EVEROLIMUS
     Indication: Malignant neoplasm of thymus
     Dosage: FREQUENCY : DAILY;?
     Route: 048
     Dates: start: 20220126
  2. GABAPENTIN [Concomitant]
  3. OXYCODONE [Concomitant]
  4. VITAMIN D3 [Concomitant]

REACTIONS (11)
  - Influenza [None]
  - Pain [None]
  - Arthralgia [None]
  - Breast pain [None]
  - Dizziness [None]
  - Dyspnoea [None]
  - Surgery [None]
  - Pain [None]
  - Post procedural complication [None]
  - Skin tightness [None]
  - Procedural pain [None]
